FAERS Safety Report 22917736 (Version 5)
Quarter: 2024Q3

REPORT INFORMATION
  Report Type: Report from Study
  Country: JP (occurrence: JP)
  Receive Date: 20230907
  Receipt Date: 20240904
  Transmission Date: 20241017
  Serious: Yes (Death, Life-Threatening, Other)
  Sender: PFIZER
  Company Number: JP-PFIZER INC-PV202300071817

PATIENT
  Age: 2 Month
  Sex: Female

DRUGS (10)
  1. SIROLIMUS [Suspect]
     Active Substance: SIROLIMUS
     Indication: Lymphangiectasia
     Dosage: 1 MG, DAILY (1 MG,1 D)
     Route: 048
     Dates: start: 20221102, end: 20221109
  2. SIROLIMUS [Suspect]
     Active Substance: SIROLIMUS
     Dosage: 0.06 MG, DAILY (0.06 MG,1 D)
     Route: 048
     Dates: start: 20221115, end: 20221117
  3. OCTREOTIDE ACETATE [Concomitant]
     Active Substance: OCTREOTIDE ACETATE
     Dosage: UNK
     Route: 065
     Dates: start: 20221020, end: 20221111
  4. ALBUMIN HUMAN [Concomitant]
     Active Substance: ALBUMIN HUMAN
     Dosage: UNK
     Route: 042
     Dates: start: 20221104, end: 20221104
  5. ALBUMIN HUMAN [Concomitant]
     Active Substance: ALBUMIN HUMAN
     Dosage: UNK
     Route: 042
     Dates: start: 20221109, end: 20221110
  6. PLATELETS [Concomitant]
     Active Substance: HUMAN PLATELET, ALLOGENIC
     Dosage: UNK
     Route: 065
     Dates: start: 20221110, end: 20221111
  7. PLATELETS [Concomitant]
     Active Substance: HUMAN PLATELET, ALLOGENIC
     Dosage: UNK
     Route: 065
     Dates: start: 20221114, end: 20221114
  8. HUMAN RED BLOOD CELL [Concomitant]
     Active Substance: HUMAN RED BLOOD CELL
     Dosage: UNK
     Route: 065
     Dates: start: 20221110, end: 20221112
  9. HUMAN RED BLOOD CELL [Concomitant]
     Active Substance: HUMAN RED BLOOD CELL
     Dosage: UNK
     Route: 065
     Dates: start: 20221115, end: 20221116
  10. FRESH FROZEN PLASMA-LEUKOCYTES REDUCED 480 [Concomitant]
     Dosage: UNK
     Route: 065
     Dates: start: 20221114, end: 20221115

REACTIONS (6)
  - Chronic respiratory disease [Fatal]
  - Circulatory collapse [Recovering/Resolving]
  - Pneumonia [Recovering/Resolving]
  - Hyperglycaemia [Recovering/Resolving]
  - Condition aggravated [Recovering/Resolving]
  - Wrong technique in product usage process [Unknown]

NARRATIVE: CASE EVENT DATE: 20221104
